FAERS Safety Report 21352899 (Version 1)
Quarter: 2022Q3

REPORT INFORMATION
  Report Type: Spontaneous
  Country: AU (occurrence: AU)
  Receive Date: 20220920
  Receipt Date: 20220920
  Transmission Date: 20221027
  Serious: Yes (Hospitalization, Other)
  Sender: FDA-Public Use
  Company Number: AU-BoehringerIngelheim-2022-BI-191823

PATIENT
  Age: 76 Year
  Sex: Male

DRUGS (2)
  1. EMPAGLIFLOZIN [Suspect]
     Active Substance: EMPAGLIFLOZIN
     Indication: Product used for unknown indication
  2. METFORMIN [Concomitant]
     Active Substance: METFORMIN HYDROCHLORIDE
     Indication: Product used for unknown indication

REACTIONS (6)
  - Blood glucose increased [Unknown]
  - Blood lactic acid increased [Unknown]
  - Diabetic ketoacidosis [Unknown]
  - Carbon dioxide abnormal [Unknown]
  - Euglycaemic diabetic ketoacidosis [Unknown]
  - Malaise [Unknown]

NARRATIVE: CASE EVENT DATE: 20210328
